FAERS Safety Report 16862926 (Version 1)
Quarter: 2019Q3

REPORT INFORMATION
  Report Type: Spontaneous
  Country: US (occurrence: US)
  Receive Date: 20190927
  Receipt Date: 20190927
  Transmission Date: 20191005
  Serious: Yes (Death, Other)
  Sender: FDA-Public Use
  Company Number: PHHY2019US223213

PATIENT
  Age: 24 Year
  Sex: Male

DRUGS (3)
  1. TACROLIMUS. [Suspect]
     Active Substance: TACROLIMUS
     Indication: PROPHYLAXIS AGAINST GRAFT VERSUS HOST DISEASE
     Dosage: UNK
     Route: 065
  2. PREDNISONE. [Suspect]
     Active Substance: PREDNISONE
     Indication: ORGANISING PNEUMONIA
     Dosage: 1 MG/KG, UNK
     Route: 065
  3. METHOTREXATE. [Suspect]
     Active Substance: METHOTREXATE
     Indication: PROPHYLAXIS AGAINST GRAFT VERSUS HOST DISEASE
     Dosage: UNK
     Route: 065

REACTIONS (9)
  - Parainfluenzae virus infection [Unknown]
  - Disease recurrence [Recovered/Resolved]
  - Organising pneumonia [Unknown]
  - Pyrexia [Recovered/Resolved]
  - Pneumonia [Fatal]
  - Cough [Recovered/Resolved]
  - Graft versus host disease [Unknown]
  - Product use in unapproved indication [Unknown]
  - Chills [Recovered/Resolved]
